FAERS Safety Report 23517493 (Version 2)
Quarter: 2025Q1

REPORT INFORMATION
  Report Type: Spontaneous
  Country: US (occurrence: US)
  Receive Date: 20240213
  Receipt Date: 20250212
  Transmission Date: 20250408
  Serious: No
  Sender: DR REDDYS
  Company Number: US-DRL-USA-LIT/USA/24/0002327

PATIENT
  Age: 34 Year
  Sex: Female

DRUGS (6)
  1. FLUOXETINE [Suspect]
     Active Substance: FLUOXETINE HYDROCHLORIDE
     Indication: Ophthalmic migraine
  2. DEXTROAMPHETAMINE [Suspect]
     Active Substance: DEXTROAMPHETAMINE
     Indication: Product used for unknown indication
  3. TOPIRAMATE [Suspect]
     Active Substance: TOPIRAMATE
     Indication: Ophthalmic migraine
  4. PROGESTERONE [Suspect]
     Active Substance: PROGESTERONE
     Indication: Ophthalmic migraine
  5. PENTOSAN POLYSULFATE [Concomitant]
     Active Substance: PENTOSAN POLYSULFATE
     Indication: Cystitis interstitial
  6. BCG VACCINE [Concomitant]
     Active Substance: BCG VACCINE
     Indication: Cystitis interstitial

REACTIONS (2)
  - Drug ineffective [Unknown]
  - Drug effective for unapproved indication [Unknown]
